FAERS Safety Report 6820881-1 (Version None)
Quarter: 2010Q3

REPORT INFORMATION
  Report Type: 
  Country: None (occurrence: None)
  Receive Date: 20100707
  Receipt Date: 20070711
  Transmission Date: 20110219
  Serious: No
  Sender: FDA-Public Use
  Company Number: US-PFIZER INC-2007057258

PATIENT
  Sex: Male
  Weight: 92.99 kg

DRUGS (5)
  1. ZOLOFT [Suspect]
     Indication: ANXIETY
     Dates: start: 20070709, end: 20070710
  2. ZOLOFT [Suspect]
     Indication: DEPRESSION
  3. NEXIUM [Concomitant]
     Indication: GASTROOESOPHAGEAL REFLUX DISEASE
  4. NORVASC [Concomitant]
  5. LISINOPRIL [Concomitant]
     Indication: HYPERTENSION

REACTIONS (9)
  - BURNING SENSATION [None]
  - CHEST PAIN [None]
  - DIZZINESS [None]
  - FEELING JITTERY [None]
  - HOT FLUSH [None]
  - INSOMNIA [None]
  - MIDDLE INSOMNIA [None]
  - NAUSEA [None]
  - TREMOR [None]
